FAERS Safety Report 11451634 (Version 1)
Quarter: 2015Q3

REPORT INFORMATION
  Report Type: Spontaneous
  Country: US (occurrence: None)
  Receive Date: 20150902
  Receipt Date: 20150902
  Transmission Date: 20151125
  Serious: Yes (Other)
  Sender: FDA-Public Use
  Company Number: None

PATIENT
  Age: 52 Year
  Sex: Male
  Weight: 65.32 kg

DRUGS (2)
  1. MENS EVERYDAY DAILY VITAMIN [Concomitant]
  2. CIPROFLOXAC 500 MG MEIJER [Suspect]
     Active Substance: CIPROFLOXACIN
     Indication: GASTROINTESTINAL DISORDER
     Dosage: 20 PILLS
     Route: 048
     Dates: start: 20150630, end: 20150823

REACTIONS (4)
  - Malaise [None]
  - Visceral pain [None]
  - Proctalgia [None]
  - Headache [None]

NARRATIVE: CASE EVENT DATE: 20150625
